FAERS Safety Report 23388916 (Version 2)
Quarter: 2024Q2

REPORT INFORMATION
  Report Type: Report from Study
  Country: SE (occurrence: SE)
  Receive Date: 20240110
  Receipt Date: 20240426
  Transmission Date: 20240716
  Serious: Yes (Other)
  Sender: FDA-Public Use
  Company Number: SE-TEVA-VS-3136337

PATIENT

DRUGS (1)
  1. CLOBETASOL PROPIONATE [Suspect]
     Active Substance: CLOBETASOL PROPIONATE
     Indication: Oral lichen planus
     Route: 061

REACTIONS (1)
  - Tertiary adrenal insufficiency [Unknown]
